FAERS Safety Report 10369050 (Version 3)
Quarter: 2014Q3

REPORT INFORMATION
  Report Type: Spontaneous
  Country: AR (occurrence: CL)
  Receive Date: 20140807
  Receipt Date: 20140827
  Transmission Date: 20150326
  Serious: Yes (Other)
  Sender: FDA-Public Use
  Company Number: AR-ABBVIE-14P-007-1269646-00

PATIENT
  Age: 82 Year
  Sex: Female

DRUGS (2)
  1. DEPAKENE [Suspect]
     Active Substance: VALPROIC ACID
     Indication: EPILEPSY
  2. MEROPENEM. [Interacting]
     Active Substance: MEROPENEM
     Indication: URINARY TRACT INFECTION PSEUDOMONAL

REACTIONS (7)
  - Urinary tract infection pseudomonal [Unknown]
  - Coma scale abnormal [Unknown]
  - Ammonia abnormal [Unknown]
  - Drug interaction [Unknown]
  - Stupor [Unknown]
  - Anticonvulsant drug level decreased [Recovered/Resolved]
  - Blood albumin abnormal [Unknown]

NARRATIVE: CASE EVENT DATE: 2013
